FAERS Safety Report 7615685-6 (Version None)
Quarter: 2011Q3

REPORT INFORMATION
  Report Type: 
  Country: None (occurrence: None)
  Receive Date: 20110711
  Receipt Date: 20110627
  Transmission Date: 20111222
  Serious: Yes (Hospitalization)
  Sender: FDA-Public Use
  Company Number: TPA2011A03543

PATIENT
  Age: 62 Year
  Sex: Female

DRUGS (1)
  1. DEXILANT [Suspect]
     Indication: GASTROOESOPHAGEAL REFLUX DISEASE

REACTIONS (4)
  - MUSCLE SPASMS [None]
  - ABASIA [None]
  - ASTHENIA [None]
  - FALL [None]
